FAERS Safety Report 16687648 (Version 1)
Quarter: 2019Q3

REPORT INFORMATION
  Report Type: Spontaneous
  Country: US (occurrence: US)
  Receive Date: 20190809
  Receipt Date: 20190809
  Transmission Date: 20191004
  Serious: No
  Sender: FDA-Public Use
  Company Number: US-PFIZER INC-2019337710

PATIENT
  Age: 7 Year
  Sex: Male
  Weight: 11.79 kg

DRUGS (5)
  1. GENOTROPIN MQ [Suspect]
     Active Substance: SOMATROPIN
     Indication: CONGENITAL ANOMALY
  2. NUTROPIN AQ NUSPIN [Concomitant]
     Active Substance: SOMATROPIN
     Dosage: UNK
  3. GENOTROPIN [Concomitant]
     Active Substance: SOMATROPIN
     Dosage: UNK
  4. GENOTROPIN MQ [Suspect]
     Active Substance: SOMATROPIN
     Indication: BODY HEIGHT BELOW NORMAL
  5. GENOTROPIN MQ [Suspect]
     Active Substance: SOMATROPIN
     Indication: PRADER-WILLI SYNDROME
     Dosage: 0.8 MG, DAILY
     Route: 058

REACTIONS (1)
  - Drug ineffective [Unknown]
